FAERS Safety Report 7662257-3 (Version None)
Quarter: 2011Q3

REPORT INFORMATION
  Report Type: 
  Country: None (occurrence: None)
  Receive Date: 20110805
  Receipt Date: 20101227
  Transmission Date: 20111222
  Serious: No
  Sender: FDA-Public Use
  Company Number: US-ABBOTT-10P-163-0693622-00

PATIENT
  Sex: Male
  Weight: 63.56 kg

DRUGS (4)
  1. NIASPAN [Suspect]
     Indication: HIGH DENSITY LIPOPROTEIN DECREASED
  2. PRAVASTATIN [Suspect]
     Indication: BLOOD CHOLESTEROL
  3. ATACAND [Concomitant]
     Indication: BLOOD PRESSURE
  4. PLAVIX [Concomitant]
     Indication: THROMBOSIS PROPHYLAXIS

REACTIONS (3)
  - NOCTURIA [None]
  - FLUSHING [None]
  - INSOMNIA [None]
